FAERS Safety Report 5158761-2 (Version None)
Quarter: 2006Q4

REPORT INFORMATION
  Report Type: 
  Country: None (occurrence: None)
  Receive Date: 20061117
  Receipt Date: 20061107
  Transmission Date: 20070319
  Serious: Yes (Other)
  Sender: FDA-Public Use
  Company Number: 2006137320

PATIENT
  Age: 65 Year
  Sex: Female

DRUGS (3)
  1. UNASYN [Suspect]
     Indication: PNEUMONIA
     Dosage: 4.5 GRAM (1.5 GRAM, 3 IN 1 D), INTRAVENOUS
     Route: 042
  2. IRINOTECAN HCL [Concomitant]
  3. MITIOMYCIN C (MITOMYCIN) [Concomitant]

REACTIONS (2)
  - CONDITION AGGRAVATED [None]
  - DYSPNOEA [None]
